FAERS Safety Report 8451259 (Version 3)
Quarter: 2012Q4

REPORT INFORMATION
  Report Type: 
  Country: CA (occurrence: CA)
  Receive Date: 20120309
  Receipt Date: 20121109
  Transmission Date: 20130627
  Serious: Yes (Other)
  Sender: FDA-Public Use
  Company Number: PHHY2011CA89593

PATIENT
  Sex: Female

DRUGS (3)
  1. GILENYA [Suspect]
     Indication: RELAPSING-REMITTING MULTIPLE SCLEROSIS
     Dosage: 0.5 mg QD
     Route: 048
     Dates: start: 20110916
  2. GILENYA [Suspect]
     Dosage: 0.5 mg, QD
     Route: 048
     Dates: start: 20120215
  3. LYRICA [Concomitant]
     Indication: NEURALGIA
     Dosage: 25 mg, QHS

REACTIONS (9)
  - Optic neuritis [Unknown]
  - Vision blurred [Not Recovered/Not Resolved]
  - Eye pain [Recovered/Resolved]
  - Photophobia [Unknown]
  - Chills [Unknown]
  - Oropharyngeal pain [Unknown]
  - Pyrexia [Unknown]
  - Vomiting [Unknown]
  - Headache [Unknown]
